FAERS Safety Report 17107537 (Version 5)
Quarter: 2020Q1

REPORT INFORMATION
  Report Type: Spontaneous
  Country: JP (occurrence: JP)
  Receive Date: 20191203
  Receipt Date: 20200323
  Transmission Date: 20200409
  Serious: Yes (Other)
  Sender: FDA-Public Use
  Company Number: JP-JNJFOC-20191145750

PATIENT
  Age: 63 Year
  Sex: Male
  Weight: 60 kg

DRUGS (12)
  1. PREZISTA [Suspect]
     Active Substance: DARUNAVIR ETHANOLATE
     Indication: HIV INFECTION
     Dosage: DARUNAVIR ETHANOLATE:800MG
     Route: 048
     Dates: start: 20110303, end: 20140903
  2. PREZISTA [Suspect]
     Active Substance: DARUNAVIR ETHANOLATE
     Dosage: DARUNAVIR ETHANOLATE:800MG
     Route: 048
     Dates: start: 20140904, end: 20181112
  3. NORVIR [Suspect]
     Active Substance: RITONAVIR
     Route: 048
     Dates: start: 20110924, end: 20181112
  4. BAKTAR [Concomitant]
     Active Substance: SULFAMETHOXAZOLE\TRIMETHOPRIM
     Indication: OPPORTUNISTIC INFECTION PROPHYLAXIS
     Route: 048
     Dates: start: 20101021, end: 20110302
  5. BAKTAR [Concomitant]
     Active Substance: SULFAMETHOXAZOLE\TRIMETHOPRIM
     Route: 048
     Dates: start: 20110414
  6. FLUCONAZOLE. [Concomitant]
     Active Substance: FLUCONAZOLE
     Indication: OPPORTUNISTIC INFECTION PROPHYLAXIS
     Route: 048
     Dates: start: 20110414
  7. TRUVADA [Suspect]
     Active Substance: EMTRICITABINE\TENOFOVIR DISOPROXIL FUMARATE
     Indication: HIV INFECTION
     Route: 048
     Dates: start: 20110303, end: 20181112
  8. AMOBAN [Concomitant]
     Active Substance: ZOPICLONE
     Indication: INSOMNIA
     Route: 048
     Dates: start: 20110331
  9. NORVIR [Suspect]
     Active Substance: RITONAVIR
     Indication: HIV INFECTION
     Route: 048
     Dates: start: 20110303, end: 20110923
  10. BAKTAR [Concomitant]
     Active Substance: SULFAMETHOXAZOLE\TRIMETHOPRIM
     Route: 048
     Dates: start: 20110303, end: 20110316
  11. BICTEGRAVIR W/EMTRICITABINE/TENOFOVIR ALAFENA [Concomitant]
     Active Substance: BICTEGRAVIR\EMTRICITABINE\TENOFOVIR ALAFENAMIDE
     Indication: HIV INFECTION
     Route: 048
     Dates: start: 20200204
  12. GENVOYA [Concomitant]
     Active Substance: COBICISTAT\ELVITEGRAVIR\EMTRICITABINE\TENOFOVIR ALAFENAMIDE FUMARATE
     Indication: HIV INFECTION
     Route: 048
     Dates: start: 20181113, end: 20200203

REACTIONS (2)
  - Hyperlipidaemia [Not Recovered/Not Resolved]
  - Prostate cancer [Recovering/Resolving]

NARRATIVE: CASE EVENT DATE: 20110929
